FAERS Safety Report 9015820 (Version 2)
Quarter: 2013Q1

REPORT INFORMATION
  Report Type: Spontaneous
  Country: US (occurrence: None)
  Receive Date: 20121231
  Receipt Date: 20130225
  Transmission Date: 20140127
  Serious: Yes (Death, Hospitalization, Other)
  Sender: FDA-Public Use
  Company Number: E2B_00000530

PATIENT
  Age: 25 Year
  Sex: Female
  Weight: 72.58 kg

DRUGS (7)
  1. QUETIAPINE FUMARATE [Suspect]
     Indication: BIPOLAR DISORDER
     Route: 048
  2. AMPHETAMINE AND DEXTROAMPHETAMINE [Suspect]
     Indication: PRODUCT USED FOR UNKNOWN INDICATION
  3. GABAPENTIN [Concomitant]
  4. OXYCODONE/APAP [Concomitant]
  5. SERTRALINE [Concomitant]
  6. HYDROCHLOROTHIAZIDE [Concomitant]
  7. DEXTROAMPHETAMINE [Suspect]

REACTIONS (8)
  - Pneumonia [None]
  - Sinusitis [None]
  - Diarrhoea [None]
  - Headache [None]
  - Dehydration [None]
  - General physical health deterioration [None]
  - Drug intolerance [None]
  - Bronchitis [None]
